FAERS Safety Report 5109399-4 (Version None)
Quarter: 2006Q3

REPORT INFORMATION
  Report Type: 
  Country: None (occurrence: None)
  Receive Date: 20060918
  Receipt Date: 20060908
  Transmission Date: 20061208
  Serious: Yes (Hospitalization)
  Sender: FDA-Public Use
  Company Number: 229221

PATIENT
  Sex: Female

DRUGS (7)
  1. XOLAIR [Suspect]
     Indication: ASTHMA
     Dosage: 375 MG, Q2W, SUBCUTANEOUS
     Route: 058
     Dates: start: 20060518, end: 20060815
  2. ADVAIR DISKUS 100/50 [Concomitant]
  3. ALLEGRA [Concomitant]
  4. ATARAX [Concomitant]
  5. ALBUTEROL (ALBUTEROL/ALBUTEROL SULFATE) [Concomitant]
  6. PATANOL [Concomitant]
  7. PROTOPIC [Concomitant]

REACTIONS (3)
  - DYSPHAGIA [None]
  - INFECTIOUS MONONUCLEOSIS [None]
  - PHARYNGOLARYNGEAL PAIN [None]
